FAERS Safety Report 8548243-X (Version None)
Quarter: 2012Q3

REPORT INFORMATION
  Report Type: 
  Country: None (occurrence: None)
  Receive Date: 20120730
  Receipt Date: 20120723
  Transmission Date: 20120928
  Serious: Yes (Life-Threatening, Disabling, Other)
  Sender: FDA-Public Use
  Company Number: US-009507513-1207USA009920

PATIENT

DRUGS (1)
  1. ZOCOR [Suspect]
     Dosage: UNK, BID
     Route: 048

REACTIONS (7)
  - MUSCLE INJURY [None]
  - INSOMNIA [None]
  - ABASIA [None]
  - HYPOAESTHESIA [None]
  - DYSKINESIA [None]
  - ARTHRALGIA [None]
  - PAIN IN EXTREMITY [None]
